FAERS Safety Report 16353086 (Version 1)
Quarter: 2019Q2

REPORT INFORMATION
  Report Type: Spontaneous
  Country: US (occurrence: US)
  Receive Date: 20190524
  Receipt Date: 20190524
  Transmission Date: 20190711
  Serious: Yes (Death, Hospitalization)
  Sender: FDA-Public Use
  Company Number: US-VANDA PHARMACEUTICALS, INC-2019TASUS003083

PATIENT
  Age: 51 Year
  Sex: Male

DRUGS (1)
  1. HETLIOZ [Suspect]
     Active Substance: TASIMELTEON
     Indication: NON-24-HOUR SLEEP-WAKE DISORDER
     Dosage: 20 MG, EVERY 24 HOURS 1 HOUR BEFORE BEDTIME
     Route: 048

REACTIONS (2)
  - Death [Fatal]
  - Cellulitis [Unknown]

NARRATIVE: CASE EVENT DATE: 20180914
